FAERS Safety Report 16993967 (Version 3)
Quarter: 2019Q4

REPORT INFORMATION
  Report Type: Spontaneous
  Country: BR (occurrence: BR)
  Receive Date: 20191105
  Receipt Date: 20191224
  Transmission Date: 20200122
  Serious: Yes (Hospitalization, Other)
  Sender: FDA-Public Use
  Company Number: NVSC2019BR021766

PATIENT
  Age: 10 Year
  Sex: Male
  Weight: 52 kg

DRUGS (1)
  1. EXJADE [Suspect]
     Active Substance: DEFERASIROX
     Indication: IRON OVERLOAD
     Dosage: 20 MG/KG, QD
     Route: 048
     Dates: start: 20191018, end: 20191024

REACTIONS (15)
  - Dehydration [Recovered/Resolved]
  - Polyuria [Unknown]
  - Haemochromatosis [Unknown]
  - Hepatitis [Recovered/Resolved]
  - Coma [Recovered/Resolved]
  - Pancreatitis acute [Recovered/Resolved]
  - Diarrhoea [Recovered/Resolved]
  - Lipase increased [Unknown]
  - Vomiting [Recovered/Resolved]
  - Confusional state [Recovered/Resolved]
  - Transaminases increased [Recovered/Resolved]
  - Renal failure [Recovered/Resolved]
  - Iron overload [Unknown]
  - Hepatomegaly [Unknown]
  - Blood creatinine increased [Recovered/Resolved]
